FAERS Safety Report 21813055 (Version 2)
Quarter: 2023Q1

REPORT INFORMATION
  Report Type: Spontaneous
  Country: US (occurrence: US)
  Receive Date: 20230103
  Receipt Date: 20230126
  Transmission Date: 20230418
  Serious: Yes (Other)
  Sender: FDA-Public Use
  Company Number: US-BAYER-2023P000323

PATIENT
  Age: 39 Year
  Sex: Male

DRUGS (1)
  1. KOGENATE FS [Suspect]
     Active Substance: ANTIHEMOPHILIC FACTOR, HUMAN RECOMBINANT
     Dosage: 3500 UNITS(+/- 10%)

REACTIONS (7)
  - Nephrolithiasis [None]
  - Haemarthrosis [None]
  - Chromaturia [None]
  - Haemarthrosis [None]
  - Muscle haemorrhage [None]
  - Haemorrhage [None]
  - Haemarthrosis [None]

NARRATIVE: CASE EVENT DATE: 20220304
